FAERS Safety Report 8883211 (Version 1)
Quarter: 2012Q4

REPORT INFORMATION
  Report Type: Report from Study
  Country: CA (occurrence: CA)
  Receive Date: 20121102
  Receipt Date: 20121102
  Transmission Date: 20130627
  Serious: Yes (Hospitalization, Other)
  Sender: FDA-Public Use
  Company Number: CA-ABBOTT-12P-028-1000852-00

PATIENT
  Age: 75 None
  Sex: Male
  Weight: 72.64 kg

DRUGS (2)
  1. LEUPROLIDE ACETATE DEPOT [Suspect]
     Indication: PROSTATE CANCER
     Route: 030
     Dates: start: 20100211
  2. PHENYTOIN (DILANTIN) (NON-ABBOTT) [Concomitant]
     Indication: PETIT MAL EPILEPSY
     Route: 048

REACTIONS (8)
  - Fall [Recovering/Resolving]
  - Lumbar vertebral fracture [Recovering/Resolving]
  - Back pain [Recovering/Resolving]
  - Decreased appetite [Recovered/Resolved]
  - Dysphagia [Recovered/Resolved]
  - Urinary retention [Recovering/Resolving]
  - Urethral stenosis [Unknown]
  - Blood pressure increased [Unknown]
